FAERS Safety Report 8829244 (Version 1)
Quarter: 2012Q4

REPORT INFORMATION
  Report Type: Spontaneous
  Country: GB (occurrence: None)
  Receive Date: 20121004
  Receipt Date: 20121004
  Transmission Date: 20130627
  Serious: Yes (Other)
  Sender: FDA-Public Use
  Company Number: CL-444-2012

PATIENT
  Age: 56 Year
  Sex: Female

DRUGS (1)
  1. METRONIDAZOLE [Suspect]
     Dosage: 1500MG/DAY, 2 WEEKS

REACTIONS (4)
  - Encephalopathy [None]
  - Vertigo [None]
  - Vomiting [None]
  - Nystagmus [None]
